FAERS Safety Report 9744149 (Version 3)
Quarter: 2013Q4

REPORT INFORMATION
  Report Type: Report from Study
  Country: JP (occurrence: JP)
  Receive Date: 20131210
  Receipt Date: 20131220
  Transmission Date: 20140711
  Serious: Yes (Hospitalization)
  Sender: FDA-Public Use
  Company Number: JP-PFIZER INC-2013348395

PATIENT
  Age: 63 Year
  Sex: Male
  Weight: 76.8 kg

DRUGS (4)
  1. OLMETEC [Suspect]
     Indication: HYPERTENSION
     Dosage: 40 MG, DAILY
     Route: 048
     Dates: start: 20121105
  2. BLINDED CS-747S [Suspect]
     Indication: ISCHAEMIC STROKE
     Dosage: 1 DF, 1X/DAY
     Route: 048
     Dates: start: 20121212
  3. TAKEPRON [Concomitant]
     Indication: HYPERCHLORHYDRIA
     Dosage: 15 MG, DAILY
     Route: 048
     Dates: start: 20121105
  4. LIPITOR [Concomitant]
     Indication: DYSLIPIDAEMIA
     Dosage: 5 MG, DAILY
     Route: 048
     Dates: start: 20121105

REACTIONS (2)
  - Retinal detachment [Recovering/Resolving]
  - Cataract nuclear [Recovering/Resolving]
